FAERS Safety Report 12894598 (Version 1)
Quarter: 2016Q4

REPORT INFORMATION
  Report Type: Spontaneous
  Country: ES (occurrence: ES)
  Receive Date: 20161028
  Receipt Date: 20161028
  Transmission Date: 20170207
  Serious: Yes (Death, Hospitalization, Other)
  Sender: FDA-Public Use
  Company Number: ES-TEVA-707397ISR

PATIENT
  Age: 42 Year
  Sex: Female
  Weight: 74 kg

DRUGS (2)
  1. DOCETAXEL AUROVITAS 20 MG/ML [Suspect]
     Active Substance: DOCETAXEL
     Indication: BREAST CANCER
     Dosage: 140 MILLIGRAM DAILY; CONCENTRATE AND SOLVENT FOR INFUSION
     Route: 042
     Dates: start: 20160810, end: 20160810
  2. DOXORUBICINA SOLUTION FOR INFUSION, 2 MG/ML [Suspect]
     Active Substance: DOXORUBICIN
     Indication: PRODUCT USED FOR UNKNOWN INDICATION
     Dosage: DAILY DOSE: 50MG/25ML
     Dates: start: 20160810

REACTIONS (11)
  - Neutropenic colitis [Fatal]
  - Multiple organ dysfunction syndrome [Fatal]
  - Septic shock [Fatal]
  - Hepatic failure [Fatal]
  - Sinus tachycardia [Fatal]
  - Abdominal compartment syndrome [Fatal]
  - Cardiac failure [Fatal]
  - Metabolic acidosis [Fatal]
  - Anuria [Fatal]
  - Neutropenia [Fatal]
  - Coagulopathy [Fatal]

NARRATIVE: CASE EVENT DATE: 20160819
